FAERS Safety Report 15677983 (Version 2)
Quarter: 2018Q4

REPORT INFORMATION
  Report Type: Report from Study
  Country: None (occurrence: NO)
  Receive Date: 20181130
  Receipt Date: 20181207
  Transmission Date: 20190205
  Serious: Yes (Death, Hospitalization)
  Sender: FDA-Public Use
  Company Number: NO-ABBVIE-18S-122-2575191-00

PATIENT
  Sex: Male

DRUGS (1)
  1. DUODOPA [Suspect]
     Active Substance: CARBIDOPA\LEVODOPA
     Indication: PRODUCT USED FOR UNKNOWN INDICATION
     Route: 050
     Dates: start: 2011

REACTIONS (2)
  - Cardiac disorder [Unknown]
  - Cardiac failure [Fatal]
